FAERS Safety Report 9247690 (Version 2)
Quarter: 2013Q2

REPORT INFORMATION
  Report Type: Spontaneous
  Country: AU (occurrence: AU)
  Receive Date: 20130423
  Receipt Date: 20130611
  Transmission Date: 20140414
  Serious: Yes (Other)
  Sender: FDA-Public Use
  Company Number: AU-ELI_LILLY_AND_COMPANY-AU201304005527

PATIENT
  Age: 60 Year
  Sex: Male

DRUGS (2)
  1. CIALIS [Suspect]
     Dosage: 5 MG, QD
     Route: 048
  2. CIALIS [Suspect]
     Dosage: 1 DF, PRN

REACTIONS (2)
  - Intraocular pressure increased [Unknown]
  - Inappropriate schedule of drug administration [Unknown]
